FAERS Safety Report 4510667-5 (Version None)
Quarter: 2004Q4

REPORT INFORMATION
  Report Type: 
  Country: None (occurrence: None)
  Receive Date: 20041123
  Receipt Date: 20041115
  Transmission Date: 20050328
  Serious: Yes (Hospitalization)
  Sender: FDA-Public Use
  Company Number: CIO04024245

PATIENT
  Age: 63 Year
  Sex: Female
  Weight: 49.9 kg

DRUGS (8)
  1. METAMUCIL SUGAR-FREE ORIGINAL TEXTURE, REGULAR FLAVOR(PSYLLIUM HYDROPH [Suspect]
     Indication: THERAPEUTIC PROCEDURE
     Dosage: 1TSP, 2/DAY FOR 9 DAYS, ORAL
     Route: 048
     Dates: start: 20041103, end: 20041114
  2. DILANTIN/AUS/(PHENYTOIN SODIUM) [Concomitant]
  3. PRIMIDONE [Concomitant]
  4. METOPROLOL TARTRATE [Concomitant]
  5. FOSAMAX [Concomitant]
  6. ZYPREXA [Concomitant]
  7. LOXITANE/00401801/(LOXAPINE) [Concomitant]
  8. COMBIVENT (SALBUTAMOL SULFATE, IPRATROPIUM BROMIDE) [Concomitant]

REACTIONS (6)
  - ABDOMINAL DISCOMFORT [None]
  - ABDOMINAL PAIN UPPER [None]
  - GENITAL BURNING SENSATION [None]
  - GENITAL PAIN [None]
  - MALAISE [None]
  - PUBIC PAIN [None]
